FAERS Safety Report 24944345 (Version 2)
Quarter: 2025Q1

REPORT INFORMATION
  Report Type: Spontaneous
  Country: US (occurrence: US)
  Receive Date: 20250208
  Receipt Date: 20250219
  Transmission Date: 20250408
  Serious: No
  Sender: JOHNSON AND JOHNSON
  Company Number: US-JNJFOC-20250174157

PATIENT

DRUGS (1)
  1. TREMFYA [Suspect]
     Active Substance: GUSELKUMAB
     Indication: Product used for unknown indication
     Dosage: 0,4,8 WEEKS
     Route: 065

REACTIONS (3)
  - Urticaria [Unknown]
  - Injection site swelling [Recovered/Resolved]
  - Mechanical urticaria [Unknown]
